FAERS Safety Report 17464563 (Version 2)
Quarter: 2020Q3

REPORT INFORMATION
  Report Type: Spontaneous
  Country: ME (occurrence: ME)
  Receive Date: 20200226
  Receipt Date: 20200925
  Transmission Date: 20201102
  Serious: Yes (Death, Other)
  Sender: FDA-Public Use
  Company Number: ME-PFIZER INC-2020084146

PATIENT
  Sex: Male

DRUGS (2)
  1. SUTENT [Suspect]
     Active Substance: SUNITINIB MALATE
     Indication: RENAL CELL CARCINOMA
     Dosage: UNK
     Route: 048
     Dates: start: 201207, end: 201307
  2. SUTENT [Suspect]
     Active Substance: SUNITINIB MALATE
     Dosage: UNK
     Route: 048
     Dates: start: 201404, end: 201501

REACTIONS (9)
  - Paraplegia [Not Recovered/Not Resolved]
  - Death [Fatal]
  - Urinary retention [Unknown]
  - Neoplasm progression [Not Recovered/Not Resolved]
  - Deep vein thrombosis [Unknown]
  - Performance status decreased [Unknown]
  - Hypothyroidism [Unknown]
  - Hypomagnesaemia [Unknown]
  - Hypertension [Unknown]

NARRATIVE: CASE EVENT DATE: 201302
